FAERS Safety Report 7219846-X (Version None)
Quarter: 2011Q1

REPORT INFORMATION
  Report Type: 
  Country: None (occurrence: None)
  Receive Date: 20110111
  Receipt Date: 20101108
  Transmission Date: 20110831
  Serious: Yes (Other)
  Sender: FDA-Public Use
  Company Number: US-ROCHE-751923

PATIENT
  Sex: Male
  Weight: 233 kg

DRUGS (5)
  1. RETIN-A [Concomitant]
     Dosage: TOPICAL TRATMENT
  2. PROACTIV [Concomitant]
  3. ACCUTANE [Suspect]
     Route: 048
     Dates: start: 20090914
  4. ACCUTANE [Suspect]
     Dosage: FREQUENCY: 40 MG TID X 20 WEEKS.
     Route: 048
     Dates: start: 19950118
  5. DOXYCYCLINE [Concomitant]

REACTIONS (3)
  - FREQUENT BOWEL MOVEMENTS [None]
  - COLITIS ULCERATIVE [None]
  - QUALITY OF LIFE DECREASED [None]
